FAERS Safety Report 7141761 (Version 3)
Quarter: 2012Q4

REPORT INFORMATION
  Report Type: 
  Country: FR (occurrence: FR)
  Receive Date: 20091007
  Receipt Date: 20121223
  Transmission Date: 20130627
  Serious: Yes (Hospitalization, Other)
  Sender: FDA-Public Use
  Company Number: FR-BRISTOL-MYERS SQUIBB COMPANY-14803928

PATIENT
  Age: 60 Year
  Sex: Male
  Weight: 64 kg

DRUGS (7)
  1. REYATAZ CAPS [Suspect]
     Indication: HIV INFECTION
     Route: 048
     Dates: start: 20050506, end: 20090618
  2. RITONAVIR [Suspect]
     Indication: HIV INFECTION
     Dates: start: 200403
  3. LAMIVUDINE [Suspect]
     Indication: HIV INFECTION
     Dates: start: 200403
  4. ABACAVIR [Suspect]
     Indication: HIV INFECTION
     Dates: start: 200610
  5. KIVEXA [Concomitant]
     Indication: HIV INFECTION
     Route: 048
     Dates: start: 20061006
  6. NORVIR [Concomitant]
     Indication: HIV INFECTION
     Route: 048
     Dates: start: 20040304
  7. SEROPRAM [Concomitant]
     Indication: DEPRESSION
     Route: 048
     Dates: start: 200403

REACTIONS (3)
  - Renal failure acute [Not Recovered/Not Resolved]
  - Tubulointerstitial nephritis [Not Recovered/Not Resolved]
  - Crystalluria [Not Recovered/Not Resolved]
